FAERS Safety Report 5156816-X (Version None)
Quarter: 2006Q4

REPORT INFORMATION
  Report Type: 
  Country: None (occurrence: None)
  Receive Date: 20061115
  Receipt Date: 20061101
  Transmission Date: 20070319
  Serious: Yes (Life-Threatening, Other)
  Sender: FDA-Public Use
  Company Number: 149348ISR

PATIENT
  Age: 65 Year
  Sex: Male

DRUGS (1)
  1. METFORMIN [Suspect]
     Indication: DIABETES MELLITUS NON-INSULIN-DEPENDENT
     Dosage: ORAL
     Route: 048

REACTIONS (7)
  - ANAPHYLACTIC REACTION [None]
  - ANGIONEUROTIC OEDEMA [None]
  - ASTHMA [None]
  - CHOKING SENSATION [None]
  - COUGH [None]
  - RASH [None]
  - WHEEZING [None]
